FAERS Safety Report 25169108 (Version 1)
Quarter: 2025Q2

REPORT INFORMATION
  Report Type: Spontaneous
  Country: JP (occurrence: JP)
  Receive Date: 20250407
  Receipt Date: 20250407
  Transmission Date: 20250717
  Serious: Yes (Death, Other)
  Sender: PFIZER
  Company Number: JP-PFIZER INC-PV202500021356

PATIENT
  Age: 77 Year
  Sex: Male
  Weight: 57.9 kg

DRUGS (41)
  1. VFEND [Suspect]
     Active Substance: VORICONAZOLE
     Indication: Bronchopulmonary aspergillosis
     Dosage: 300 MG, 1X/DAY
     Route: 042
     Dates: start: 20250218, end: 20250219
  2. VFEND [Suspect]
     Active Substance: VORICONAZOLE
     Dosage: 200 MG, 1X/DAY
     Route: 042
     Dates: start: 20250219, end: 20250219
  3. VFEND [Suspect]
     Active Substance: VORICONAZOLE
     Dosage: 200 MG, 2X/DAY
     Route: 042
     Dates: start: 20250220, end: 20250220
  4. VFEND [Suspect]
     Active Substance: VORICONAZOLE
     Dosage: 200 MG, 1X/DAY
     Route: 042
     Dates: start: 20250221, end: 20250221
  5. VFEND [Suspect]
     Active Substance: VORICONAZOLE
     Dosage: 150 MG, 1X/DAY
     Route: 042
     Dates: start: 20250221, end: 20250221
  6. VFEND [Suspect]
     Active Substance: VORICONAZOLE
     Dosage: 150 MG, 2X/DAY
     Route: 042
     Dates: start: 20250222, end: 20250227
  7. VFEND [Suspect]
     Active Substance: VORICONAZOLE
     Dosage: 150 MG, 1X/DAY
     Route: 042
     Dates: start: 20250228, end: 20250228
  8. VFEND [Suspect]
     Active Substance: VORICONAZOLE
     Dosage: 100 MG, 1X/DAY
     Route: 042
     Dates: start: 20250228, end: 20250228
  9. VFEND [Suspect]
     Active Substance: VORICONAZOLE
     Dosage: 100 MG, 2X/DAY
     Route: 042
     Dates: start: 20250301, end: 20250304
  10. VFEND [Suspect]
     Active Substance: VORICONAZOLE
     Dosage: 100 MG, 1X/DAY
     Route: 042
     Dates: start: 20250305, end: 20250305
  11. SULFAMETHOXAZOLE\TRIMETHOPRIM [Concomitant]
     Active Substance: SULFAMETHOXAZOLE\TRIMETHOPRIM
     Dosage: UNK, 1X/DAY AFTER BREAKFAST
     Route: 048
     Dates: start: 20250205, end: 20250214
  12. SULFAMETHOXAZOLE\TRIMETHOPRIM [Concomitant]
     Active Substance: SULFAMETHOXAZOLE\TRIMETHOPRIM
     Dosage: UNK, 1X/DAY AFTER BREAKFAST
     Route: 048
     Dates: start: 20250305, end: 20250306
  13. CALONAL [Concomitant]
     Active Substance: ACETAMINOPHEN
     Dosage: UNK, 4X/DAY EVERY AFTER MEALS AND BEFORE SLEEP
     Dates: start: 20250205, end: 20250307
  14. HYDROMORPHONE HYDROCHLORIDE [Concomitant]
     Active Substance: HYDROMORPHONE HYDROCHLORIDE
     Dosage: UNK, 1X/DAY AT 14:00
     Route: 048
     Dates: start: 20250205, end: 20250307
  15. MAGNESIUM OXIDE [Concomitant]
     Active Substance: MAGNESIUM OXIDE
     Dosage: UNK, 3X/DAY EVERY AFTER MEALS
     Route: 048
     Dates: start: 20250205, end: 20250307
  16. OLMESARTAN OD DSEP [Concomitant]
     Dosage: UNK, 1X/DAY AFTER BREAKFAST
     Route: 048
     Dates: start: 20250205, end: 20250207
  17. OLMESARTAN OD DSEP [Concomitant]
     Dosage: UNK, 1X/DAY AFTER BREAKFAST
     Route: 048
     Dates: start: 20250211, end: 20250228
  18. ROSUVASTATIN OD DSEP [Concomitant]
     Dosage: UNK, 1X/DAY AFTER BREAKFAST
     Route: 048
     Dates: start: 20250205, end: 20250307
  19. FAMOTIDINE [Concomitant]
     Active Substance: FAMOTIDINE
     Dosage: UNK, 2X/DAY AFTER BREAKFAST AND DINNER
     Route: 048
     Dates: start: 20250205, end: 20250307
  20. HEPARIN SODIUM [Concomitant]
     Active Substance: HEPARIN SODIUM
     Dosage: UNK, 1X/DAY
     Dates: start: 20250205, end: 20250205
  21. HEPARIN SODIUM [Concomitant]
     Active Substance: HEPARIN SODIUM
     Dosage: UNK, 1X/DAY
     Dates: start: 20250207, end: 20250209
  22. HEPARIN SODIUM [Concomitant]
     Active Substance: HEPARIN SODIUM
     Dosage: UNK, 1X/DAY
     Dates: start: 20250211, end: 20250212
  23. HEPARIN SODIUM [Concomitant]
     Active Substance: HEPARIN SODIUM
     Dosage: UNK, 1X/DAY
     Dates: start: 20250215, end: 20250304
  24. CEFEPIME HYDROCHLORIDE [Concomitant]
     Active Substance: CEFEPIME HYDROCHLORIDE
     Dates: start: 20250206, end: 20250217
  25. CEFEPIME HYDROCHLORIDE [Concomitant]
     Active Substance: CEFEPIME HYDROCHLORIDE
     Dosage: UNK, 1X/DAY
     Dates: start: 20250218, end: 20250218
  26. RAMELTEON TAKEDA TEVA [Concomitant]
     Dosage: UNK, 1X/DAY BEFORE SLEEP
     Route: 048
     Dates: start: 20250218, end: 20250307
  27. CALCIUM CHLORIDE ANHYDROUS\POTASSIUM CHLORIDE\SODIUM CHLORIDE\SODIUM L [Concomitant]
     Active Substance: CALCIUM CHLORIDE ANHYDROUS\POTASSIUM CHLORIDE\SODIUM CHLORIDE\SODIUM LACTATE
     Dosage: UNK, 1X/DAY
     Dates: start: 20250218, end: 20250218
  28. FENTANYL CITRATE [Concomitant]
     Active Substance: FENTANYL CITRATE
     Dosage: UNK, 1X/DAY
     Dates: start: 20250218, end: 20250218
  29. FLUMAZENIL [Concomitant]
     Active Substance: FLUMAZENIL
     Dosage: UNK, 1X/DAY
     Dates: start: 20250218, end: 20250218
  30. MIDAZOLAM [Concomitant]
     Active Substance: MIDAZOLAM
     Dosage: UNK, 1X/DAY
     Dates: start: 20250218, end: 20250218
  31. AMPICILLIN SODIUM\SULBACTAM SODIUM [Concomitant]
     Active Substance: AMPICILLIN SODIUM\SULBACTAM SODIUM
     Dosage: UNK, 1X/DAY
     Dates: start: 20250218, end: 20250305
  32. CARBAZOCHROME SODIUM SULFONATE [Concomitant]
     Active Substance: CARBAZOCHROME SODIUM SULFONATE
     Dates: start: 20250218, end: 20250218
  33. TRANEXAMIC ACID [Concomitant]
     Active Substance: TRANEXAMIC ACID
     Dates: start: 20250218, end: 20250218
  34. HEPARINOID [Concomitant]
     Dosage: UNK, 1 TO 2 DOSES DAILY (APPLING TO AFFECTED AREA)
     Dates: start: 20250221, end: 20250221
  35. HEPARINOID [Concomitant]
     Dosage: UNK, 1 TO 2 DOSES DAILY (APPLING TO AFFECTED AREA)
     Dates: start: 20250223, end: 20250223
  36. METOCLOPRAMIDE [Concomitant]
     Active Substance: METOCLOPRAMIDE
     Dates: start: 20250302, end: 20250302
  37. SOLU-MEDROL [Concomitant]
     Active Substance: METHYLPREDNISOLONE SODIUM SUCCINATE
     Dosage: UNK, 1X/DAY
     Dates: start: 20250304, end: 20250305
  38. FUROSEMIDE NIG [Concomitant]
     Dosage: UNK, 1X/DAY
     Dates: start: 20250304, end: 20250305
  39. MORPHINE HYDROCHLORIDE [Concomitant]
     Active Substance: MORPHINE HYDROCHLORIDE
     Dosage: UNK, 1X/DAY
     Dates: start: 20250305, end: 20250305
  40. MEROPENEM NP [Concomitant]
     Dosage: UNK, 1X/DAY
     Dates: start: 20250305, end: 20250305
  41. CIPROFLOXACIN [Concomitant]
     Active Substance: CIPROFLOXACIN
     Dosage: UNK, 1X/DAY
     Dates: start: 20250305, end: 20250305

REACTIONS (4)
  - Hallucination [Fatal]
  - Interstitial lung disease [Fatal]
  - Anxiety [Unknown]
  - Insomnia [Unknown]

NARRATIVE: CASE EVENT DATE: 20250219
